FAERS Safety Report 18631279 (Version 3)
Quarter: 2021Q1

REPORT INFORMATION
  Report Type: Report from Study
  Country: US (occurrence: US)
  Receive Date: 20201218
  Receipt Date: 20210106
  Transmission Date: 20210419
  Serious: Yes (Other)
  Sender: FDA-Public Use
  Company Number: NVSC2020US335331

PATIENT
  Age: 39 Year
  Sex: Male

DRUGS (1)
  1. COSENTYX [Suspect]
     Active Substance: SECUKINUMAB
     Indication: PSORIATIC ARTHROPATHY
     Dosage: UNK UNK , QMO
     Route: 058
     Dates: start: 202007

REACTIONS (4)
  - Rash macular [Unknown]
  - Loss of therapeutic response [Unknown]
  - Psoriatic arthropathy [Unknown]
  - Psoriasis [Unknown]
